FAERS Safety Report 6116577-4 (Version None)
Quarter: 2009Q1

REPORT INFORMATION
  Report Type: 
  Country: None (occurrence: None)
  Receive Date: 20090314
  Receipt Date: 20081217
  Transmission Date: 20090719
  Serious: No
  Sender: FDA-Public Use
  Company Number: US-ABBOTT-08P-163-0493864-00

PATIENT
  Sex: Male

DRUGS (3)
  1. HUMIRA [Suspect]
     Indication: RHEUMATOID ARTHRITIS
     Dates: start: 20081101, end: 20081218
  2. PREDNISONE [Concomitant]
     Indication: POLYMYOSITIS
     Dosage: SLIDING SCALE IN INCREMENTS OF 2.5MG
  3. ROXICET [Concomitant]
     Indication: PAIN

REACTIONS (8)
  - CHEST PAIN [None]
  - EAR INFECTION [None]
  - FEELING ABNORMAL [None]
  - HEADACHE [None]
  - MUSCLE SPASMS [None]
  - NASOPHARYNGITIS [None]
  - RESPIRATORY TRACT CONGESTION [None]
  - SINUSITIS [None]
